FAERS Safety Report 16449916 (Version 1)
Quarter: 2019Q2

REPORT INFORMATION
  Report Type: Report from Study
  Country: AU (occurrence: AU)
  Receive Date: 20190619
  Receipt Date: 20190619
  Transmission Date: 20190711
  Serious: Yes (Other)
  Sender: FDA-Public Use
  Company Number: AU-TOLMAR, INC.-2019AU006230

PATIENT

DRUGS (1)
  1. ELIGARD [Suspect]
     Active Substance: LEUPROLIDE ACETATE
     Indication: PROSTATE CANCER
     Dosage: 7.5 MG, MONTHLY
     Route: 058
     Dates: start: 20180226

REACTIONS (3)
  - Haematuria [Recovered/Resolved]
  - Influenza [Unknown]
  - Nephrolithiasis [Recovered/Resolved]
